FAERS Safety Report 5946337-6 (Version None)
Quarter: 2008Q4

REPORT INFORMATION
  Report Type: 
  Country: None (occurrence: None)
  Receive Date: 20081110
  Receipt Date: 20081010
  Transmission Date: 20090506
  Serious: No
  Sender: FDA-Public Use
  Company Number: US-BAYER-200836032NA

PATIENT
  Age: 20 Year
  Sex: Female
  Weight: 84 kg

DRUGS (1)
  1. MIRENA [Suspect]
     Indication: CONTRACEPTION
     Route: 015
     Dates: start: 20080425

REACTIONS (6)
  - ABDOMINAL PAIN [None]
  - ACNE [None]
  - EMOTIONAL DISORDER [None]
  - HEADACHE [None]
  - PRESYNCOPE [None]
  - WEIGHT INCREASED [None]
